FAERS Safety Report 23701979 (Version 1)
Quarter: 2024Q2

REPORT INFORMATION
  Report Type: Spontaneous
  Country: PK (occurrence: PK)
  Receive Date: 20240403
  Receipt Date: 20240403
  Transmission Date: 20240716
  Serious: Yes (Other)
  Sender: FDA-Public Use
  Company Number: PK-PFIZER INC-2020123659

PATIENT
  Age: 27 Year
  Sex: Male

DRUGS (10)
  1. ENBREL [Suspect]
     Active Substance: ETANERCEPT
     Indication: Ankylosing spondylitis
     Dosage: 50 MG (ALTERNATE WEEK)
     Route: 065
     Dates: start: 202101
  2. ENBREL [Suspect]
     Active Substance: ETANERCEPT
     Indication: Axial spondyloarthritis
     Dosage: 50 MG, WEEKLY
     Route: 058
  3. ENBREL [Suspect]
     Active Substance: ETANERCEPT
     Dosage: 50 MG (ALTERNATE WEEK)
     Route: 058
     Dates: start: 20211228
  4. HALOPERIDOL [Concomitant]
     Active Substance: HALOPERIDOL
     Indication: Pain
     Dosage: UNK
  5. ESCITALOPRAM OXALATE [Concomitant]
     Active Substance: ESCITALOPRAM OXALATE
     Dosage: 10 MG, 1X/DAY (1-0-0)
  6. CELBEXX [Concomitant]
     Indication: Pain
     Dosage: 200 MG, 2X/DAY (1+0+1)
  7. Zeegap [Concomitant]
     Dosage: 50 MG, 1X/DAY
     Route: 048
  8. DEXXOO [Concomitant]
     Indication: Abdominal discomfort
     Dosage: 30 MG, 1X/DAY (1+0+0)
  9. NUBEROL [Concomitant]
     Dosage: UNK
  10. FEXOFENADINE [Concomitant]
     Active Substance: FEXOFENADINE HYDROCHLORIDE
     Dosage: 60 MG, 2X/DAY (1+0+1)

REACTIONS (5)
  - Uveitis [Unknown]
  - Injection site pain [Unknown]
  - C-reactive protein increased [Unknown]
  - Alanine aminotransferase increased [Unknown]
  - Off label use [Unknown]
